FAERS Safety Report 8963607 (Version 2)
Quarter: 2013Q1

REPORT INFORMATION
  Report Type: Report from Study
  Country: FR (occurrence: FR)
  Receive Date: 20121214
  Receipt Date: 20130102
  Transmission Date: 20140127
  Serious: Yes (Death, Life-Threatening, Hospitalization)
  Sender: FDA-Public Use
  Company Number: FR-SANOFI-AVENTIS-2012SA090228

PATIENT
  Age: 55 Year
  Sex: Male
  Weight: 60 kg

DRUGS (5)
  1. CABAZITAXEL [Suspect]
     Indication: HEAD AND NECK CANCER
     Route: 042
     Dates: start: 20121127, end: 20121127
  2. DOLIPRANE [Concomitant]
     Indication: PAIN
     Route: 065
     Dates: start: 20120808
  3. TRIATEC [Concomitant]
     Route: 065
     Dates: start: 20111110
  4. NOVOMIX [Concomitant]
     Indication: DIABETES MELLITUS
     Route: 065
     Dates: start: 20111110
  5. LYRICA [Concomitant]
     Indication: PAIN
     Route: 065
     Dates: start: 20120808

REACTIONS (3)
  - Bone marrow failure [Fatal]
  - Septic shock [Fatal]
  - Multi-organ failure [Fatal]
